FAERS Safety Report 6147151-1 (Version None)
Quarter: 2009Q2

REPORT INFORMATION
  Report Type: 
  Country: None (occurrence: None)
  Receive Date: 20090407
  Receipt Date: 20080415
  Transmission Date: 20091009
  Serious: Yes (Death)
  Sender: FDA-Public Use
  Company Number: US-TYCO HEALTHCARE/MALLINCKRODT-T200800687

PATIENT

DRUGS (4)
  1. OXYCODONE HCL [Suspect]
  2. OXYCODONE HCL AND ACETAMINOPHEN [Suspect]
  3. ACETAMINOPHEN AND HYDROCODONE BITARTRATE [Suspect]
  4. METHADOSE [Suspect]

REACTIONS (1)
  - ACCIDENTAL OVERDOSE [None]
